FAERS Safety Report 6775745-9 (Version None)
Quarter: 2010Q2

REPORT INFORMATION
  Report Type: 
  Country: None (occurrence: None)
  Receive Date: 20100617
  Receipt Date: 20100614
  Transmission Date: 20101027
  Serious: Yes (Other)
  Sender: FDA-Public Use
  Company Number: CHPA2010US09972

PATIENT
  Age: 66 Year
  Sex: Male
  Weight: 88.435 kg

DRUGS (1)
  1. BENEFIBER W/ WHEAT DEXTRIN (NCH) [Suspect]
     Indication: NUTRITIONAL SUPPORT
     Dosage: 6 TSP (2 TABLESPOONS ONCE A DAY), QD
     Route: 048
     Dates: start: 20090101, end: 20100614

REACTIONS (2)
  - INCORRECT DOSE ADMINISTERED [None]
  - SARCOMA [None]
